FAERS Safety Report 15145078 (Version 15)
Quarter: 2019Q2

REPORT INFORMATION
  Report Type: Report from Study
  Country: US (occurrence: US)
  Receive Date: 20180713
  Receipt Date: 20190610
  Transmission Date: 20190711
  Serious: Yes (Hospitalization)
  Sender: FDA-Public Use
  Company Number: US-ACTELION-A-NJ2018-169001

PATIENT
  Age: 34 Year
  Sex: Female
  Weight: 45.35 kg

DRUGS (8)
  1. VELETRI [Suspect]
     Active Substance: EPOPROSTENOL
     Dosage: 78 NG/KG, PER MIN
     Route: 042
  2. REMODULIN [Concomitant]
     Active Substance: TREPROSTINIL
     Dosage: UNK
     Route: 042
     Dates: start: 20190529
  3. VELETRI [Suspect]
     Active Substance: EPOPROSTENOL
     Dosage: 80 NG/KG, PER MIN
     Route: 042
  4. BREO ELLIPTA [Concomitant]
     Active Substance: FLUTICASONE FUROATE\VILANTEROL TRIFENATATE
  5. VELETRI [Suspect]
     Active Substance: EPOPROSTENOL
     Dosage: 82 NG/KG, PER MIN
     Route: 042
  6. WARFARIN [Concomitant]
     Active Substance: WARFARIN
  7. VELETRI [Suspect]
     Active Substance: EPOPROSTENOL
     Indication: PULMONARY ARTERIAL HYPERTENSION
     Dosage: 81 NG/KG, PER MIN
     Route: 042
     Dates: end: 20190529
  8. VELETRI [Suspect]
     Active Substance: EPOPROSTENOL
     Dosage: 77 NG/KG, PER MIN
     Route: 042

REACTIONS (19)
  - Ovarian cystectomy [Unknown]
  - Pain in jaw [Unknown]
  - Flushing [Unknown]
  - Catheterisation cardiac [Unknown]
  - Oxygen saturation decreased [Unknown]
  - Product deposit [Recovered/Resolved]
  - Pneumonia [Unknown]
  - Device alarm issue [Unknown]
  - Device occlusion [Unknown]
  - Chest pain [Unknown]
  - Catheter site pain [Unknown]
  - Lung disorder [Unknown]
  - Therapy change [Unknown]
  - Device malfunction [Unknown]
  - Back pain [Unknown]
  - Catheter management [Unknown]
  - Hypersensitivity [Unknown]
  - Thrombosis in device [Unknown]
  - Palpitations [Unknown]

NARRATIVE: CASE EVENT DATE: 2018
